FAERS Safety Report 6220868-6 (Version None)
Quarter: 2009Q2

REPORT INFORMATION
  Report Type: 
  Country: None (occurrence: None)
  Receive Date: 20090610
  Receipt Date: 20090602
  Transmission Date: 20091009
  Serious: Yes (Other)
  Sender: FDA-Public Use
  Company Number: PHHY2009FR21799

PATIENT
  Sex: Male

DRUGS (1)
  1. VOLTAREN [Suspect]
     Indication: ARTHRALGIA
     Dosage: 1 DF, ONCE/SINGLE
     Route: 048
     Dates: start: 20071002

REACTIONS (4)
  - ABDOMINAL PAIN UPPER [None]
  - ATRIOVENTRICULAR BLOCK FIRST DEGREE [None]
  - MALAISE [None]
  - URTICARIA [None]
